FAERS Safety Report 6210424-8 (Version None)
Quarter: 2009Q2

REPORT INFORMATION
  Report Type: 
  Country: None (occurrence: None)
  Receive Date: 20090601
  Receipt Date: 20090521
  Transmission Date: 20091009
  Serious: Yes (Disabling, Other)
  Sender: FDA-Public Use
  Company Number: A0754175A

PATIENT
  Sex: Male

DRUGS (2)
  1. ZYBAN [Suspect]
     Indication: SMOKING CESSATION THERAPY
     Dosage: 150MG TWICE PER DAY
     Route: 048
     Dates: start: 20081009, end: 20081023
  2. UNKNOWN [Concomitant]

REACTIONS (3)
  - ANXIETY [None]
  - DISABILITY [None]
  - IMPAIRED DRIVING ABILITY [None]
